FAERS Safety Report 12168519 (Version 5)
Quarter: 2018Q3

REPORT INFORMATION
  Report Type: Report from Study
  Country: JP (occurrence: JP)
  Receive Date: 20160310
  Receipt Date: 20180824
  Transmission Date: 20181010
  Serious: Yes (Hospitalization, Other)
  Sender: FDA-Public Use
  Company Number: JP-AMGEN-JPNNI2016030242

PATIENT
  Age: 92 Year
  Sex: Female

DRUGS (3)
  1. DARBEPOETIN ALFA [Suspect]
     Active Substance: DARBEPOETIN ALFA
     Indication: PRODUCT USED FOR UNKNOWN INDICATION
     Dosage: UNK
     Route: 042
     Dates: start: 20150114, end: 20150610
  2. DARBEPOETIN ALFA [Suspect]
     Active Substance: DARBEPOETIN ALFA
     Dosage: UNK
     Route: 042
     Dates: start: 20150617, end: 20161123
  3. DARBEPOETIN ALFA [Suspect]
     Active Substance: DARBEPOETIN ALFA
     Dosage: UNK
     Route: 042
     Dates: start: 20161128

REACTIONS (7)
  - Arteriovenous fistula site complication [Recovering/Resolving]
  - Fracture [Recovering/Resolving]
  - Hospitalisation [Recovering/Resolving]
  - Hospitalisation [Recovering/Resolving]
  - Anaemia [Recovering/Resolving]
  - Hospitalisation [Recovering/Resolving]
  - Pneumonia [Recovering/Resolving]

NARRATIVE: CASE EVENT DATE: 20150604
